FAERS Safety Report 18382320 (Version 1)
Quarter: 2020Q4

REPORT INFORMATION
  Report Type: Spontaneous
  Country: US (occurrence: US)
  Receive Date: 20201013
  Receipt Date: 20201013
  Transmission Date: 20210114
  Serious: Yes (Hospitalization)
  Sender: FDA-Public Use
  Company Number: None

PATIENT
  Sex: Female

DRUGS (2)
  1. NURTEC ODT [Concomitant]
     Active Substance: RIMEGEPANT SULFATE
     Dates: start: 20201011
  2. HUMIRA [Suspect]
     Active Substance: ADALIMUMAB
     Indication: PRODUCT USED FOR UNKNOWN INDICATION
     Dosage: FREQUENCY: EVERY 2 WEEKS
     Route: 058
     Dates: start: 20201007

REACTIONS (1)
  - Crohn^s disease [None]
